FAERS Safety Report 17556487 (Version 1)
Quarter: 2020Q1

REPORT INFORMATION
  Report Type: Report from Study
  Country: JP (occurrence: JP)
  Receive Date: 20200318
  Receipt Date: 20200318
  Transmission Date: 20200409
  Serious: Yes (Death, Hospitalization, Other)
  Sender: FDA-Public Use
  Company Number: PHJP2018JP015088

PATIENT
  Age: 53 Year
  Sex: Female

DRUGS (12)
  1. ALECTINIB HYDROCHLORIDE [Suspect]
     Active Substance: ALECTINIB HYDROCHLORIDE
     Indication: LUNG ADENOCARCINOMA
     Dosage: UNK
     Route: 065
  2. DENOTAS [Concomitant]
     Active Substance: CALCIUM CARBONATE\CHOLECALCIFEROL\MAGNESIUM CARBONATE
     Indication: PRODUCT USED FOR UNKNOWN INDICATION
     Dosage: 2 DF, UNK
     Route: 048
  3. REFLEX [Concomitant]
     Active Substance: MIRTAZAPINE
     Indication: NON-SMALL CELL LUNG CANCER STAGE IV
     Dosage: 15 MG, UNK
     Route: 048
  4. ZYKADIA [Suspect]
     Active Substance: CERITINIB
     Indication: SQUAMOUS CELL CARCINOMA
  5. MAGMITT [Concomitant]
     Active Substance: MAGNESIUM OXIDE
     Indication: NON-SMALL CELL LUNG CANCER STAGE IV
     Dosage: 1250 MG, UNK
     Route: 048
  6. ZYKADIA [Suspect]
     Active Substance: CERITINIB
     Indication: NON-SMALL CELL LUNG CANCER STAGE IV
     Dosage: 750 MG, QD
     Route: 048
     Dates: start: 20170318, end: 20170404
  7. CALONAL [Concomitant]
     Active Substance: ACETAMINOPHEN
     Indication: PRODUCT USED FOR UNKNOWN INDICATION
     Dosage: 3000 MG, UNK
     Route: 048
  8. OXINORM [Concomitant]
     Indication: NON-SMALL CELL LUNG CANCER STAGE IV
     Dosage: 10 MG, UNK
     Route: 048
  9. MINOCYCLINE [Concomitant]
     Active Substance: MINOCYCLINE HYDROCHLORIDE
     Indication: NON-SMALL CELL LUNG CANCER STAGE IV
     Dosage: 100 MG, UNK
     Route: 048
  10. NEXIUM [Concomitant]
     Active Substance: ESOMEPRAZOLE MAGNESIUM
     Indication: NON-SMALL CELL LUNG CANCER STAGE IV
     Dosage: 20 MG, UNK
     Route: 048
  11. OXYCODONE [Concomitant]
     Active Substance: OXYCODONE
     Indication: NON-SMALL CELL LUNG CANCER STAGE IV
     Dosage: 40 MG, UNK
     Route: 048
  12. CODEINE [Concomitant]
     Active Substance: CODEINE
     Indication: NON-SMALL CELL LUNG CANCER STAGE IV
     Dosage: 60 MG, UNK
     Route: 048

REACTIONS (15)
  - Sputum retention [Fatal]
  - Atelectasis [Fatal]
  - Somnolence [Fatal]
  - Drug resistance [Unknown]
  - Malignant neoplasm progression [Fatal]
  - Obstructive airways disorder [Fatal]
  - Lymphadenopathy [Fatal]
  - Squamous cell carcinoma [Fatal]
  - Respiratory failure [Fatal]
  - Metastases to central nervous system [Fatal]
  - Headache [Fatal]
  - Treatment failure [Unknown]
  - Product use in unapproved indication [Unknown]
  - Non-small cell lung cancer stage IV [Fatal]
  - Respiratory depression [Unknown]

NARRATIVE: CASE EVENT DATE: 20170331
